FAERS Safety Report 24726977 (Version 1)
Quarter: 2024Q4

REPORT INFORMATION
  Report Type: Spontaneous
  Country: US (occurrence: None)
  Receive Date: 20241212
  Receipt Date: 20241212
  Transmission Date: 20250114
  Serious: Yes (Hospitalization)
  Sender: Public
  Company Number: None

PATIENT
  Age: 77 Year
  Sex: Male

DRUGS (3)
  1. DROXIDOPA [Suspect]
     Active Substance: DROXIDOPA
     Indication: Plasma cell myeloma
     Dosage: FREQUENCY : 3 TIMES A DAY;?
     Route: 048
  2. POMALYST [Concomitant]
     Active Substance: POMALIDOMIDE
  3. REVLIMID [Concomitant]
     Active Substance: LENALIDOMIDE

REACTIONS (3)
  - Dyspnoea [None]
  - Fluid retention [None]
  - Pulmonary oedema [None]

NARRATIVE: CASE EVENT DATE: 20241205
